FAERS Safety Report 18072328 (Version 1)
Quarter: 2020Q3

REPORT INFORMATION
  Report Type: Spontaneous
  Country: US (occurrence: US)
  Receive Date: 20200727
  Receipt Date: 20200727
  Transmission Date: 20201103
  Serious: Yes (Hospitalization)
  Sender: FDA-Public Use
  Company Number: None

PATIENT
  Age: 87 Year
  Sex: Male
  Weight: 62 kg

DRUGS (1)
  1. CETUXIMAB (CETUXIMAB 2MG/ML INJ, 100ML) [Suspect]
     Active Substance: CETUXIMAB
     Indication: SQUAMOUS CELL CARCINOMA OF THE ORAL CAVITY
     Route: 048
     Dates: start: 20191006, end: 20191025

REACTIONS (3)
  - Acute kidney injury [None]
  - Jaundice [None]
  - Hepatic enzyme increased [None]

NARRATIVE: CASE EVENT DATE: 20191125
